FAERS Safety Report 23405882 (Version 1)
Quarter: 2024Q1

REPORT INFORMATION
  Report Type: Spontaneous
  Country: IN (occurrence: IN)
  Receive Date: 20240116
  Receipt Date: 20240116
  Transmission Date: 20240410
  Serious: No
  Sender: FDA-Public Use
  Company Number: IN-HALOZYME THERAPEUTICS, INC.-2023-IN-HYL-01161

PATIENT

DRUGS (3)
  1. HYLENEX RECOMBINANT [Suspect]
     Active Substance: HYALURONIDASE (HUMAN RECOMBINANT)
     Indication: Cataract operation
     Dosage: 500 IU
  2. LIDOCAINE HYDROCHLORIDE [Concomitant]
     Active Substance: LIDOCAINE HYDROCHLORIDE
     Dosage: 3 MILLILITER 2%
  3. EPINEPHRINE HYDROCHLORIDE [Concomitant]
     Active Substance: EPINEPHRINE HYDROCHLORIDE
     Dosage: 1:100,000

REACTIONS (5)
  - Exophthalmos [Recovered/Resolved]
  - Periorbital oedema [Recovered/Resolved]
  - Eye pain [Unknown]
  - Conjunctival oedema [Recovered/Resolved]
  - Extraocular muscle disorder [Unknown]
